FAERS Safety Report 4341397-0 (Version None)
Quarter: 2004Q2

REPORT INFORMATION
  Report Type: 
  Country: None (occurrence: None)
  Receive Date: 20040413
  Receipt Date: 20040326
  Transmission Date: 20050107
  Serious: Yes (Life-Threatening, Hospitalization)
  Sender: FDA-Public Use
  Company Number: 6008209

PATIENT
  Age: 82 Year
  Sex: Female

DRUGS (6)
  1. METFORMIN HYDROCHLORIDE [Suspect]
     Indication: DIABETES MELLITUS
     Dosage: 850 MG
     Route: 048
     Dates: end: 20031219
  2. GLYBURIDE [Concomitant]
  3. ENALAPRIL MALEATE [Concomitant]
  4. DILUTOL (TORASEMIDE) [Concomitant]
  5. DIOVAN HCT [Concomitant]
  6. SOTAPOR (SOTALOL) [Concomitant]

REACTIONS (3)
  - DIZZINESS [None]
  - LACTIC ACIDOSIS [None]
  - RENAL FAILURE ACUTE [None]
